FAERS Safety Report 4456991-6 (Version None)
Quarter: 2004Q3

REPORT INFORMATION
  Report Type: 
  Country: None (occurrence: None)
  Receive Date: 20040923
  Receipt Date: 20040716
  Transmission Date: 20050211
  Serious: Yes (Life-Threatening, Hospitalization)
  Sender: FDA-Public Use
  Company Number: ITPFP-L-20040001

PATIENT
  Age: 60 Year
  Sex: Male

DRUGS (4)
  1. NAVELBINE [Suspect]
     Indication: LUNG NEOPLASM MALIGNANT
     Dosage: 25MGM2 PER DAY
     Route: 042
  2. CISPLATIN [Suspect]
     Route: 042
  3. MANNITOL [Concomitant]
  4. DEXAMETHASONE [Concomitant]

REACTIONS (5)
  - ABDOMINAL PAIN [None]
  - HAMARTOMA [None]
  - SPLENIC HAEMATOMA [None]
  - SPLENIC RUPTURE [None]
  - SPLENOMEGALY [None]
